FAERS Safety Report 4595854-2 (Version None)
Quarter: 2005Q1

REPORT INFORMATION
  Report Type: 
  Country: None (occurrence: None)
  Receive Date: 20050224
  Receipt Date: 20050207
  Transmission Date: 20050727
  Serious: Yes (Other)
  Sender: FDA-Public Use
  Company Number: FR_050205769

PATIENT
  Age: 74 Year
  Sex: Female

DRUGS (3)
  1. EVISTA [Suspect]
     Indication: OSTEOPOROSIS
     Dosage: 60 MG DAY
  2. RALOXIFENE HCL [Suspect]
     Indication: OSTEOPOROSIS
     Dosage: 60 MG DAY
  3. LEVOTHYROXINE SODIUM [Concomitant]

REACTIONS (5)
  - ARTHRALGIA [None]
  - ARTHROPATHY [None]
  - BONE DISORDER [None]
  - COMPLEX REGIONAL PAIN SYNDROME [None]
  - SPINAL DISORDER [None]
